FAERS Safety Report 18015918 (Version 1)
Quarter: 2020Q3

REPORT INFORMATION
  Report Type: Spontaneous
  Country: UY (occurrence: UY)
  Receive Date: 20200713
  Receipt Date: 20200713
  Transmission Date: 20201103
  Serious: Yes (Other)
  Sender: FDA-Public Use
  Company Number: UY-JNJFOC-20200529574

PATIENT
  Age: 75 Year
  Sex: Male

DRUGS (6)
  1. DIAPRESAN D [HYDROCHLOROTHIAZIDE;VALSARTAN] [Concomitant]
     Dosage: UNK
  2. RIVAROXABAN [Suspect]
     Active Substance: RIVAROXABAN
     Indication: PRODUCT USED FOR UNKNOWN INDICATION
     Dosage: 15 MG
     Route: 048
  3. CLOPIDOGREL [Concomitant]
     Active Substance: CLOPIDOGREL BISULFATE
     Indication: PROSTHETIC VESSEL IMPLANTATION
     Dosage: UNK
  4. CORENTEL [Concomitant]
     Dosage: 10 MG
  5. RIVAROXABAN [Suspect]
     Active Substance: RIVAROXABAN
     Dosage: 20 MG
     Route: 048
  6. DROSMINA [Concomitant]
     Dosage: UNK

REACTIONS (3)
  - Lower gastrointestinal haemorrhage [Unknown]
  - Haemorrhoidal haemorrhage [Unknown]
  - Erectile dysfunction [Not Recovered/Not Resolved]

NARRATIVE: CASE EVENT DATE: 20200520
